FAERS Safety Report 7494702-0 (Version None)
Quarter: 2011Q2

REPORT INFORMATION
  Report Type: 
  Country: None (occurrence: None)
  Receive Date: 20110520
  Receipt Date: 20110517
  Transmission Date: 20111010
  Serious: Yes (Hospitalization)
  Sender: FDA-Public Use
  Company Number: IT-ABBOTT-11P-083-0722748-00

PATIENT
  Age: 61 Year
  Sex: Male

DRUGS (2)
  1. XANAX [Suspect]
     Indication: SUICIDE ATTEMPT
     Dosage: ONCE
     Route: 048
     Dates: start: 20110402, end: 20110402
  2. DEPAKENE [Suspect]
     Indication: SUICIDE ATTEMPT
     Dosage: ONCE
     Route: 048
     Dates: start: 20110402, end: 20110402

REACTIONS (3)
  - INTENTIONAL SELF-INJURY [None]
  - PSYCHOMOTOR RETARDATION [None]
  - SOMNOLENCE [None]
